FAERS Safety Report 19077798 (Version 1)
Quarter: 2021Q1

REPORT INFORMATION
  Report Type: Spontaneous
  Country: US (occurrence: US)
  Receive Date: 20210331
  Receipt Date: 20210331
  Transmission Date: 20210420
  Serious: Yes (Hospitalization)
  Sender: FDA-Public Use
  Company Number: US-STRIDES ARCOLAB LIMITED-2021SP001062

PATIENT
  Age: 37 Year
  Sex: Female

DRUGS (17)
  1. OSELTAMIVIR [Suspect]
     Active Substance: OSELTAMIVIR
     Indication: PNEUMOCYSTIS JIROVECII INFECTION
     Dosage: 75 MILLIGRAM, BID
     Route: 048
  2. COTRIMOXAZOLE [Suspect]
     Active Substance: SULFAMETHOXAZOLE\TRIMETHOPRIM
     Dosage: 320 MILLIGRAM, TWICE?DAILY
     Route: 048
  3. VORICONAZOLE. [Suspect]
     Active Substance: VORICONAZOLE
     Dosage: 300 MILLIGRAM(4 MG/KG), TWICE DAILY
     Route: 048
  4. FLUTICASONE PROPIONATE;SALMETEROL [Concomitant]
     Active Substance: FLUTICASONE PROPIONATE\SALMETEROL XINAFOATE
     Indication: ASTHMA
     Dosage: 500 MCG/50 MCG, TWICE DAILY
  5. PREDNISONE. [Concomitant]
     Active Substance: PREDNISONE
     Indication: ASTHMA
     Dosage: 40 MILLIGRAM DAILY FOR 5 DAYS
     Route: 065
  6. ISAVUCONAZONIUM SULFATE [Suspect]
     Active Substance: ISAVUCONAZONIUM SULFATE
     Indication: PNEUMOCYSTIS JIROVECII INFECTION
     Dosage: 372 MILLIGRAM, EVERY 8 HOURS FOR 6 DOSES
     Route: 048
  7. VORICONAZOLE. [Suspect]
     Active Substance: VORICONAZOLE
     Indication: PNEUMOCYSTIS JIROVECII INFECTION
     Dosage: 6 MILLIGRAM/KILOGRAM, EVERY 12 HRS FOR 2 DOSES
     Route: 042
  8. CEFEPIME [Suspect]
     Active Substance: CEFEPIME HYDROCHLORIDE
     Indication: PNEUMOCYSTIS JIROVECII INFECTION
     Dosage: 2 GRAM, EVERY 8 HOURS
     Route: 042
  9. ALBUTEROL [SALBUTAMOL] [Concomitant]
     Active Substance: ALBUTEROL
     Indication: ASTHMA
     Dosage: 90 MCG, AS NEEDED
  10. COTRIMOXAZOLE [Suspect]
     Active Substance: SULFAMETHOXAZOLE\TRIMETHOPRIM
     Dosage: 160 MILLIGRAM, ONCE DAILY
     Route: 048
  11. AMPHOTERICIN [Suspect]
     Active Substance: AMPHOTERICIN B
     Indication: PNEUMOCYSTIS JIROVECII INFECTION
     Dosage: 5 MILLIGRAM/KILOGRAM, ONCE DAILY
     Route: 042
  12. ISAVUCONAZONIUM SULFATE [Suspect]
     Active Substance: ISAVUCONAZONIUM SULFATE
     Dosage: 372 MILLIGRAM,  ONCE DAILY
     Route: 048
  13. AMOXICILLIN + CLAVULANIC ACID [Concomitant]
     Active Substance: AMOXICILLIN\CLAVULANIC ACID
     Indication: ASTHMA
     Dosage: UNK, FOR 7 DAYS
     Route: 065
  14. COTRIMOXAZOLE [Suspect]
     Active Substance: SULFAMETHOXAZOLE\TRIMETHOPRIM
     Indication: PNEUMOCYSTIS JIROVECII INFECTION
     Dosage: 15 MILLIGRAM/KILOGRAM, EVERY 8 HOURS
     Route: 042
  15. BUDESONIDE. [Concomitant]
     Active Substance: BUDESONIDE
     Indication: ASTHMA
     Dosage: 90 MCG, TWICE DAILY
  16. PREDNISONE. [Concomitant]
     Active Substance: PREDNISONE
     Dosage: 40 MILLIGRAM DAILY FOR 5 DAYS
     Route: 065
  17. CEFDINIR. [Concomitant]
     Active Substance: CEFDINIR
     Indication: ASTHMA
     Dosage: 300 MILLIGRAM, BID
     Route: 065

REACTIONS (2)
  - Off label use [Unknown]
  - Maternal exposure during pregnancy [Unknown]
